FAERS Safety Report 10753675 (Version 1)
Quarter: 2015Q1

REPORT INFORMATION
  Report Type: Spontaneous
  Country: FR (occurrence: FR)
  Receive Date: 20150201
  Receipt Date: 20150201
  Transmission Date: 20150721
  Serious: Yes (Hospitalization)
  Sender: FDA-Public Use
  Company Number: PHHY2015FR009319

PATIENT
  Age: 57 Year
  Sex: Male

DRUGS (4)
  1. COTAREG [Suspect]
     Active Substance: HYDROCHLOROTHIAZIDE\VALSARTAN
     Indication: PRODUCT USED FOR UNKNOWN INDICATION
     Dosage: 1 DF, QD (80 MG VALSARTAN AND 12.5 MG HYDROCHLOROTHIAZIDE)
     Route: 048
  2. COTAREG [Suspect]
     Active Substance: HYDROCHLOROTHIAZIDE\VALSARTAN
     Dosage: UNK
     Route: 048
     Dates: start: 20150114
  3. JANUMET [Suspect]
     Active Substance: METFORMIN HYDROCHLORIDE\SITAGLIPTIN PHOSPHATE
     Indication: PRODUCT USED FOR UNKNOWN INDICATION
     Dosage: 1 DF, BID
     Route: 048
     Dates: end: 201410
  4. EMTRICITABINE W/RILPIVIRINE/TENOFOVIR DISOPRO [Suspect]
     Active Substance: EMTRICITABINE\RILPIVIRINE\TENOFOVIR DISOPROXIL FUMARATE
     Indication: HIV INFECTION
     Dosage: 1 DF, QD
     Route: 048
     Dates: start: 20140221, end: 20141011

REACTIONS (11)
  - Hepatic steatosis [None]
  - Malnutrition [None]
  - Renal tubular acidosis [None]
  - Asthma [None]
  - Mitochondrial toxicity [None]
  - Bronchitis [None]
  - Hepatomegaly [None]
  - Acute kidney injury [None]
  - Renal tubular disorder [Recovered/Resolved]
  - Rhinolaryngitis [None]
  - Weight decreased [None]

NARRATIVE: CASE EVENT DATE: 201410
